FAERS Safety Report 5265844-5 (Version None)
Quarter: 2007Q1

REPORT INFORMATION
  Report Type: 
  Country: None (occurrence: None)
  Receive Date: 20070312
  Receipt Date: 20070312
  Transmission Date: 20070707
  Serious: Yes (Life-Threatening)
  Sender: FDA-Public Use
  Company Number: None

PATIENT
  Age: 63 Year
  Sex: Male
  Weight: 101.3789 kg

DRUGS (6)
  1. AVASTIN [Suspect]
     Indication: COLORECTAL CANCER
     Dosage: 765 MG Q2WEEKS IV BOLUS
     Route: 040
     Dates: start: 20070209, end: 20070302
  2. ELOXATIN [Concomitant]
  3. XELODA [Concomitant]
  4. DECADRON [Concomitant]
  5. ALOXI -PALONESTRON- [Concomitant]
  6. LORAZEPAM [Concomitant]

REACTIONS (3)
  - BACK PAIN [None]
  - BODY TEMPERATURE INCREASED [None]
  - CHILLS [None]
